FAERS Safety Report 7782782-4 (Version None)
Quarter: 2011Q3

REPORT INFORMATION
  Report Type: 
  Country: None (occurrence: None)
  Receive Date: 20110928
  Receipt Date: 20110926
  Transmission Date: 20111222
  Serious: Yes (Other)
  Sender: FDA-Public Use
  Company Number: NZ-PFIZER INC-2011194233

PATIENT
  Age: 39 Year
  Sex: Male

DRUGS (5)
  1. ZOPICLONE [Concomitant]
     Indication: INSOMNIA
     Dosage: 7.5 MG, 1X/DAY
     Route: 048
     Dates: start: 20110718
  2. ZOLOFT [Suspect]
     Dosage: 150 MG, 1X/DAY
     Route: 048
     Dates: start: 20110101
  3. LORAZEPAM [Concomitant]
     Indication: AGITATION
  4. ZOLOFT [Suspect]
     Indication: DEPRESSION
     Dosage: 50 MG, 1X/DAY
     Route: 048
     Dates: start: 20110721
  5. LORAZEPAM [Concomitant]
     Indication: ANXIETY
     Dosage: 0.5 MG, 3X/DAY OR AS NEEDED
     Route: 048
     Dates: start: 20110718

REACTIONS (1)
  - ALCOHOLISM [None]
